FAERS Safety Report 9103699 (Version 1)
Quarter: 2013Q1

REPORT INFORMATION
  Report Type: Spontaneous
  Country: CN (occurrence: CN)
  Receive Date: 20130219
  Receipt Date: 20130219
  Transmission Date: 20140127
  Serious: Yes (Other)
  Sender: FDA-Public Use
  Company Number: CN-JNJFOC-20130205773

PATIENT
  Sex: 0

DRUGS (1)
  1. INFLIXIMAB, RECOMBINANT [Suspect]
     Indication: ARTHRITIS
     Dosage: 100 MG PER VIAL; AT WEEK 0, 2 AND 6, 1 TIME RESPECTIVELY
     Route: 042

REACTIONS (2)
  - Lymph node tuberculosis [Recovered/Resolved]
  - Erythema induratum [Recovered/Resolved]
